FAERS Safety Report 22058106 (Version 1)
Quarter: 2023Q1

REPORT INFORMATION
  Report Type: Spontaneous
  Country: DE (occurrence: DE)
  Receive Date: 20230303
  Receipt Date: 20230303
  Transmission Date: 20230418
  Serious: Yes (Other)
  Sender: FDA-Public Use
  Company Number: DE-MYLANLABS-2023M1004290

PATIENT
  Age: 35 Year
  Sex: Female

DRUGS (1)
  1. CLOZAPINE [Suspect]
     Active Substance: CLOZAPINE
     Indication: Product used for unknown indication
     Dosage: 300 MILLIGRAM, QD

REACTIONS (12)
  - Delirium [Unknown]
  - Psychotic symptom [Unknown]
  - Antipsychotic drug level below therapeutic [Unknown]
  - Sedation complication [Unknown]
  - Unevaluable event [Unknown]
  - Therapy cessation [Unknown]
  - Tachycardia [Unknown]
  - Agitation [Unknown]
  - Restlessness [Unknown]
  - Dry skin [Unknown]
  - Paranoia [Unknown]
  - Abnormal behaviour [Unknown]
